FAERS Safety Report 6773574-3 (Version None)
Quarter: 2010Q2

REPORT INFORMATION
  Report Type: 
  Country: None (occurrence: None)
  Receive Date: 20100611
  Receipt Date: 20100603
  Transmission Date: 20101027
  Serious: Yes (Hospitalization, Disabling)
  Sender: FDA-Public Use
  Company Number: 2007-163591-NL

PATIENT
  Age: 28 Year
  Sex: Female
  Weight: 120.2 kg

DRUGS (4)
  1. NUVARING [Suspect]
     Indication: CONTRACEPTION
     Dosage: 1 DF; QM; VAG
     Route: 067
     Dates: start: 20040227, end: 20040801
  2. NAPROXEN [Concomitant]
  3. ULTRACET [Concomitant]
  4. DARVOCET [Concomitant]

REACTIONS (34)
  - ABDOMINAL PAIN [None]
  - ACTIVATED PARTIAL THROMBOPLASTIN TIME PROLONGED [None]
  - ARTHRALGIA [None]
  - BACK PAIN [None]
  - BREAST DISCHARGE [None]
  - BREAST TENDERNESS [None]
  - COAGULOPATHY [None]
  - DEEP VEIN THROMBOSIS [None]
  - DISCOMFORT [None]
  - ELECTROCARDIOGRAM T WAVE INVERSION [None]
  - EPISTAXIS [None]
  - FAT NECROSIS [None]
  - FEELING HOT [None]
  - FIBRIN D DIMER INCREASED [None]
  - GINGIVAL BLEEDING [None]
  - INTERNATIONAL NORMALISED RATIO INCREASED [None]
  - INTERVERTEBRAL DISC PROTRUSION [None]
  - LIPOMA [None]
  - MASS [None]
  - MUSCLE STRAIN [None]
  - MUSCULOSKELETAL PAIN [None]
  - OEDEMA PERIPHERAL [None]
  - PAIN IN EXTREMITY [None]
  - PROCEDURAL PAIN [None]
  - PROTHROMBIN TIME PROLONGED [None]
  - PULMONARY EMBOLISM [None]
  - ROAD TRAFFIC ACCIDENT [None]
  - SCAR [None]
  - SINUS BRADYCARDIA [None]
  - SPINAL OSTEOARTHRITIS [None]
  - SWELLING [None]
  - TENDERNESS [None]
  - VAGINAL HAEMORRHAGE [None]
  - VAGINITIS BACTERIAL [None]
